FAERS Safety Report 8539442-1 (Version None)
Quarter: 2012Q3

REPORT INFORMATION
  Report Type: 
  Country: None (occurrence: None)
  Receive Date: 20120726
  Receipt Date: 20120719
  Transmission Date: 20120928
  Serious: Yes (Other)
  Sender: FDA-Public Use
  Company Number: US-JNJFOC-20120518249

PATIENT
  Sex: Female

DRUGS (10)
  1. TOPAMAX [Suspect]
     Indication: MIGRAINE
     Route: 048
     Dates: start: 20051201, end: 20051230
  2. AMOXICILLIN [Suspect]
     Indication: INFECTION
     Route: 065
  3. ERRIN [Suspect]
     Indication: CONTRACEPTION
     Route: 048
  4. UNKNOWN MEDICATION [Suspect]
     Indication: MIGRAINE
     Route: 065
  5. CEPHALEXIN [Suspect]
     Indication: INFECTION
     Route: 065
  6. MULTI-VITAMINS [Concomitant]
     Route: 048
  7. EPIDURAL ANESTHESIA [Suspect]
     Indication: ANAESTHESIA
     Route: 065
  8. IMITREX [Suspect]
     Indication: MIGRAINE
     Route: 048
  9. ZOLOFT [Suspect]
     Indication: DEPRESSION
     Route: 048
  10. CAFFEINE [Suspect]
     Indication: MIGRAINE
     Route: 065

REACTIONS (4)
  - PREGNANCY [None]
  - EMOTIONAL DISORDER [None]
  - OTITIS MEDIA [None]
  - MATERNAL EXPOSURE DURING PREGNANCY [None]
